FAERS Safety Report 8941406 (Version 1)
Quarter: 2012Q4

REPORT INFORMATION
  Report Type: 
  Country: US (occurrence: US)
  Receive Date: 20121203
  Receipt Date: 20121203
  Transmission Date: 20130627
  Serious: Yes (Other)
  Sender: FDA-Public Use
  Company Number: US-BAYER-2012-126058

PATIENT
  Age: 27 Year
  Sex: Female
  Weight: 56.24 kg

DRUGS (3)
  1. ALEVE CAPLET/TABLET,MIDOL EXTENDED RELIEF CAPLET [Suspect]
     Indication: MENSTRUAL CRAMPS
     Dosage: 2 DF, ONCE
     Route: 048
     Dates: start: 2010, end: 20121128
  2. THE VITAMIN CODE MULTIVITAMIN [Concomitant]
  3. GATORADE [Concomitant]

REACTIONS (7)
  - Rash [Recovered/Resolved]
  - Pruritus [Recovered/Resolved]
  - Pruritus [Recovered/Resolved]
  - Swollen tongue [Recovered/Resolved]
  - Vomiting [Recovered/Resolved]
  - Skin warm [Recovered/Resolved]
  - Abdominal discomfort [Recovered/Resolved]
